FAERS Safety Report 19766682 (Version 1)
Quarter: 2021Q3

REPORT INFORMATION
  Report Type: Spontaneous
  Country: GB (occurrence: GB)
  Receive Date: 20210830
  Receipt Date: 20210830
  Transmission Date: 20211014
  Serious: Yes (Disabling, Other)
  Sender: FDA-Public Use
  Company Number: None

PATIENT
  Age: 25 Year
  Sex: Female

DRUGS (4)
  1. MOMETASONE [Suspect]
     Active Substance: MOMETASONE
  2. PROTOPIC [Suspect]
     Active Substance: TACROLIMUS
  3. EUMOVATE [Suspect]
     Active Substance: CLOBETASONE BUTYRATE
  4. HYDROCORTISONE. [Suspect]
     Active Substance: HYDROCORTISONE

REACTIONS (2)
  - Dependence [None]
  - Steroid withdrawal syndrome [None]

NARRATIVE: CASE EVENT DATE: 20200310
